FAERS Safety Report 9297732 (Version 1)
Quarter: 2013Q2

REPORT INFORMATION
  Report Type: Spontaneous
  Country: CA (occurrence: CA)
  Receive Date: 20130520
  Receipt Date: 20130520
  Transmission Date: 20140414
  Serious: Yes (Other)
  Sender: FDA-Public Use
  Company Number: PHHY2013CA048294

PATIENT
  Sex: 0

DRUGS (6)
  1. EVEROLIMUS [Suspect]
     Indication: GLIOBLASTOMA
     Dosage: 2.5 MG, DAILY
     Route: 048
  2. EVEROLIMUS [Suspect]
     Dosage: 2.5 MG, DAILY
     Route: 048
  3. EVEROLIMUS [Suspect]
     Dosage: 5 MG, DAILY
     Route: 048
  4. TEMOZOLOMIDE [Suspect]
     Indication: GLIOBLASTOMA
     Dosage: 150 MG/M2, QD
  5. TEMOZOLOMIDE [Suspect]
     Dosage: 200 MG/M2, QD
  6. TEMOZOLOMIDE [Suspect]
     Dosage: 150 MG/M2, QD

REACTIONS (2)
  - Left ventricular dysfunction [Unknown]
  - Sinus tachycardia [Unknown]
